FAERS Safety Report 10010896 (Version 1)
Quarter: 2014Q1

REPORT INFORMATION
  Report Type: Spontaneous
  Country: IN (occurrence: None)
  Receive Date: 20140311
  Receipt Date: 20140311
  Transmission Date: 20141002
  Serious: Yes (Hospitalization, Disabling)
  Sender: FDA-Public Use
  Company Number: 2014000064

PATIENT
  Age: 67 Year
  Sex: Female

DRUGS (4)
  1. ACEON [Suspect]
     Indication: HYPERTENSION
  2. OLMESARTAN [Suspect]
     Indication: HYPERTENSION
  3. TORSEMIDE [Suspect]
  4. INSULIN MIXTARD 30 HM [Suspect]
     Indication: DIABETES MELLITUS

REACTIONS (10)
  - Paralysis [None]
  - Asthenia [None]
  - Constipation [None]
  - Dyspnoea [None]
  - Hyperkalaemia [None]
  - Restlessness [None]
  - Rales [None]
  - Blood sodium decreased [None]
  - High density lipoprotein decreased [None]
  - Low density lipoprotein increased [None]
